FAERS Safety Report 20054565 (Version 3)
Quarter: 2022Q1

REPORT INFORMATION
  Report Type: Report from Study
  Country: AR (occurrence: AR)
  Receive Date: 20211110
  Receipt Date: 20220201
  Transmission Date: 20220424
  Serious: Yes (Other)
  Sender: FDA-Public Use
  Company Number: AR-TAKEDA-2021TUS029346

PATIENT
  Age: 19 Year
  Sex: Male

DRUGS (4)
  1. IDURSULFASE [Suspect]
     Active Substance: IDURSULFASE
     Indication: Product used for unknown indication
     Dosage: 30 MILLIGRAM, 1/WEEK
     Route: 050
     Dates: start: 20050521
  2. IDURSULFASE [Suspect]
     Active Substance: IDURSULFASE
     Dosage: 6 MILLIGRAM, 1/WEEK
     Route: 050
     Dates: start: 20070507
  3. IDURSULFASE [Suspect]
     Active Substance: IDURSULFASE
     Dosage: 4 DOSAGE FORM
     Route: 042
     Dates: start: 20150521
  4. IDURSULFASE [Suspect]
     Active Substance: IDURSULFASE
     Dosage: 4 DOSAGE FORM
     Route: 042
     Dates: start: 20070507

REACTIONS (11)
  - Cellulitis [Recovering/Resolving]
  - Ear pain [Not Recovered/Not Resolved]
  - Fall [Recovered/Resolved]
  - Face injury [Recovered/Resolved]
  - Tooth injury [Recovered/Resolved]
  - Swelling [Recovering/Resolving]
  - Restlessness [Recovered/Resolved]
  - Pyrexia [Recovered/Resolved]
  - Constipation [Recovering/Resolving]
  - Ear infection [Recovering/Resolving]
  - Dental discomfort [Recovering/Resolving]

NARRATIVE: CASE EVENT DATE: 20210330
